FAERS Safety Report 8259123-1 (Version None)
Quarter: 2012Q2

REPORT INFORMATION
  Report Type: 
  Country: None (occurrence: None)
  Receive Date: 20120404
  Receipt Date: 20120327
  Transmission Date: 20120825
  Serious: Yes (Hospitalization)
  Sender: FDA-Public Use
  Company Number: US-JNJFOC-20120314270

PATIENT
  Age: 18 Year
  Sex: Female
  Weight: 58.6 kg

DRUGS (1)
  1. TYLENOL PM [Suspect]
     Indication: PRODUCT USED FOR UNKNOWN INDICATION
     Route: 048

REACTIONS (4)
  - OVERDOSE [None]
  - ACUTE RESPIRATORY FAILURE [None]
  - COMA [None]
  - CONVULSION [None]
